FAERS Safety Report 18882333 (Version 1)
Quarter: 2021Q1

REPORT INFORMATION
  Report Type: Spontaneous
  Country: US (occurrence: US)
  Receive Date: 20210212
  Receipt Date: 20210212
  Transmission Date: 20210420
  Serious: Yes (Hospitalization, Other)
  Sender: FDA-Public Use
  Company Number: US-BRISTOL-MYERS SQUIBB COMPANY-BMS-2021-012423

PATIENT
  Sex: Female
  Weight: 93 kg

DRUGS (4)
  1. ELIQUIS [Suspect]
     Active Substance: APIXABAN
     Indication: FACTOR V LEIDEN MUTATION
     Dosage: UNK
     Route: 065
     Dates: start: 2019, end: 202009
  2. LEVODOPA [Concomitant]
     Active Substance: LEVODOPA
     Indication: PARKINSON^S DISEASE
     Dosage: UNK
     Route: 065
  3. GOCOVRI [Suspect]
     Active Substance: AMANTADINE
     Indication: DYSKINESIA
     Dosage: 274 MILLIGRAM, QD
     Route: 048
     Dates: start: 20190824
  4. ELIQUIS [Suspect]
     Active Substance: APIXABAN
     Indication: BLOOD DISORDER
     Dosage: UNK
     Route: 065
     Dates: start: 20201028

REACTIONS (6)
  - Intentional product use issue [Unknown]
  - Syncope [Unknown]
  - Platelet count decreased [Unknown]
  - Sciatica [Unknown]
  - Blood pressure fluctuation [Recovering/Resolving]
  - Pneumonia [Recovering/Resolving]

NARRATIVE: CASE EVENT DATE: 2020
